FAERS Safety Report 19355980 (Version 1)
Quarter: 2021Q2

REPORT INFORMATION
  Report Type: Spontaneous
  Country: US (occurrence: US)
  Receive Date: 20210602
  Receipt Date: 20210602
  Transmission Date: 20210717
  Serious: Yes (Other)
  Sender: FDA-Public Use
  Company Number: US-ROCHE-2840453

PATIENT
  Sex: Female

DRUGS (2)
  1. DALFAMPRIDINE. [Concomitant]
     Active Substance: DALFAMPRIDINE
  2. OCREVUS [Suspect]
     Active Substance: OCRELIZUMAB
     Indication: MULTIPLE SCLEROSIS
     Route: 042
     Dates: start: 20181228

REACTIONS (1)
  - Multiple sclerosis relapse [Unknown]
